FAERS Safety Report 18954893 (Version 2)
Quarter: 2021Q2

REPORT INFORMATION
  Report Type: Spontaneous
  Country: US (occurrence: US)
  Receive Date: 20210301
  Receipt Date: 20210402
  Transmission Date: 20210717
  Serious: No
  Sender: FDA-Public Use
  Company Number: US-ASTRAZENECA-2021A077330

PATIENT
  Age: 915 Month
  Sex: Female
  Weight: 53.5 kg

DRUGS (6)
  1. DUONEB [Concomitant]
     Active Substance: ALBUTEROL SULFATE\IPRATROPIUM BROMIDE
     Indication: PNEUMONIA
     Route: 065
  2. PULMICORT FLEXHALER [Suspect]
     Active Substance: BUDESONIDE
     Indication: BRONCHITIS
     Dosage: 90 MCG ONE PUFF TWICE A DAY
     Route: 055
     Dates: start: 20201110
  3. XYZAL [Concomitant]
     Active Substance: LEVOCETIRIZINE DIHYDROCHLORIDE
     Route: 065
  4. RESPIMAT [Concomitant]
     Route: 065
  5. PULMICORT FLEXHALER [Suspect]
     Active Substance: BUDESONIDE
     Indication: PNEUMONIA
     Dosage: 90 MCG ONE PUFF TWICE A DAY
     Route: 055
     Dates: start: 20201110
  6. DYMISTA [Concomitant]
     Active Substance: AZELASTINE HYDROCHLORIDE\FLUTICASONE PROPIONATE
     Route: 065

REACTIONS (7)
  - Pneumonia [Recovered/Resolved]
  - Respiratory gas exchange disorder [Unknown]
  - Weight increased [Unknown]
  - Illness [Unknown]
  - Hypopnoea [Unknown]
  - Weight decreased [Unknown]
  - Respiration abnormal [Unknown]

NARRATIVE: CASE EVENT DATE: 202011
